FAERS Safety Report 8360527-7 (Version None)
Quarter: 2012Q2

REPORT INFORMATION
  Report Type: 
  Country: None (occurrence: None)
  Receive Date: 20120515
  Receipt Date: 20120508
  Transmission Date: 20120825
  Serious: Yes (Death)
  Sender: FDA-Public Use
  Company Number: US-ELI_LILLY_AND_COMPANY-US201205002903

PATIENT
  Sex: Male

DRUGS (2)
  1. ALIMTA [Suspect]
     Dosage: UNK, UNKNOWN
     Dates: start: 20110610
  2. ALIMTA [Suspect]
     Dosage: UNK, UNKNOWN
     Dates: start: 20110902

REACTIONS (1)
  - DEATH [None]
